FAERS Safety Report 9519880 (Version 1)
Quarter: 2013Q1

REPORT INFORMATION
  Report Type: Spontaneous
  Country: US (occurrence: None)
  Receive Date: 20130305
  Receipt Date: 20130305
  Transmission Date: 20140127
  Serious: Yes (Other)
  Sender: FDA-Public Use
  Company Number: 163-21880-12012832

PATIENT
  Age: 73 Year
  Sex: Female
  Weight: 89 kg

DRUGS (10)
  1. REVLIMID (LENALIDOMIDE) (15 MILLIGRAM, CAPSULES) [Suspect]
     Indication: PLASMA CELL MYELOMA
     Dosage: 15 MG, DAYS 1-14, PO
     Route: 048
     Dates: start: 20120103
  2. VELCADE (BORTEZOMIB) [Concomitant]
  3. DEXAMETHASONE (DEXAMETHASONE) [Concomitant]
  4. LASIX (FUROSEMIDE) [Concomitant]
  5. DIFLUCAN (FLUCONAZOLE) [Concomitant]
  6. LIPITOR (ATORVASTATIN) [Concomitant]
  7. PRILOSEC [Concomitant]
  8. PROCHLORPERAZINE MALEATE (PROCHLORPERAZINE MALEATE) [Concomitant]
  9. TOPROL XL (METOPROLOL SUCCINATE) (100 MILLIGRAM) (METOPROLOL SUCCINATE) [Concomitant]
  10. XANAX (ADPRAZOLAM) [Concomitant]

REACTIONS (4)
  - Syncope [None]
  - Fall [None]
  - Dehydration [None]
  - Local swelling [None]
